FAERS Safety Report 25884251 (Version 1)
Quarter: 2025Q4

REPORT INFORMATION
  Report Type: Spontaneous
  Country: JP (occurrence: JP)
  Receive Date: 20251006
  Receipt Date: 20251006
  Transmission Date: 20260118
  Serious: Yes (Other)
  Sender: REGENERON
  Company Number: JP-BAYER-2025A130497

PATIENT
  Age: 79 Year
  Sex: Male

DRUGS (1)
  1. EYLEA [Suspect]
     Active Substance: AFLIBERCEPT
     Indication: Macular degeneration
     Dosage: UNK, Q2MON, SOLUTION FOR INJECTION, 40 MG/ML
     Route: 031

REACTIONS (1)
  - Transitional cell carcinoma [Not Recovered/Not Resolved]
